FAERS Safety Report 8222270-4 (Version None)
Quarter: 2012Q1

REPORT INFORMATION
  Report Type: 
  Country: None (occurrence: None)
  Receive Date: 20120320
  Receipt Date: 20120316
  Transmission Date: 20120608
  Serious: Yes (Hospitalization)
  Sender: FDA-Public Use
  Company Number: US-GLAXOSMITHKLINE-A0969303A

PATIENT
  Age: 7 Year
  Sex: Female
  Weight: 25 kg

DRUGS (17)
  1. ALBUTEROL [Concomitant]
  2. RADIATION [Suspect]
     Indication: T-CELL TYPE ACUTE LEUKAEMIA
     Route: 061
  3. OCEAN NASAL [Concomitant]
  4. ZOFRAN [Concomitant]
  5. FLONASE [Concomitant]
  6. METHOTREXATE [Suspect]
     Indication: T-CELL TYPE ACUTE LEUKAEMIA
     Route: 037
  7. NEILMED SINUS RINSE [Concomitant]
  8. CYCLOPHOSPHAMIDE [Suspect]
     Indication: T-CELL TYPE ACUTE LEUKAEMIA
     Dosage: 1000MGM2 CYCLIC
     Route: 042
  9. ZYRTEC [Concomitant]
  10. BACTRIM [Concomitant]
  11. NELARABINE [Suspect]
     Indication: T-CELL TYPE ACUTE LEUKAEMIA
     Dosage: 650MGM2 CYCLIC
     Route: 042
     Dates: start: 20120117
  12. MERCAPTOPURINE [Suspect]
     Indication: T-CELL TYPE ACUTE LEUKAEMIA
     Dosage: 60MGM2 CYCLIC
     Route: 048
  13. VINCRISTINE [Suspect]
     Indication: T-CELL TYPE ACUTE LEUKAEMIA
     Dosage: 1.5MGM2 CYCLIC
     Route: 042
  14. PEG-ASPARAGINASE [Suspect]
     Indication: T-CELL TYPE ACUTE LEUKAEMIA
     Route: 030
  15. CYTARABINE [Suspect]
     Indication: T-CELL TYPE ACUTE LEUKAEMIA
     Dosage: 75MGM2 CYCLIC
     Route: 042
  16. MIRALAX [Concomitant]
  17. FAMOTIDINE [Concomitant]

REACTIONS (5)
  - BLOOD CREATINE PHOSPHOKINASE INCREASED [None]
  - ALANINE AMINOTRANSFERASE INCREASED [None]
  - RHABDOMYOLYSIS [None]
  - BACK PAIN [None]
  - ASPARTATE AMINOTRANSFERASE INCREASED [None]
